FAERS Safety Report 17529173 (Version 1)
Quarter: 2020Q1

REPORT INFORMATION
  Report Type: Spontaneous
  Country: GB (occurrence: GB)
  Receive Date: 20200311
  Receipt Date: 20200311
  Transmission Date: 20200409
  Serious: Yes (Other)
  Sender: FDA-Public Use
  Company Number: GB-TEVA-2020-GB-1198154

PATIENT
  Age: 22 Year
  Sex: Male

DRUGS (2)
  1. LIDOCAINE. [Suspect]
     Active Substance: LIDOCAINE
     Dosage: 3.5 ML
     Dates: start: 20190618, end: 20190618
  2. CEFTRIAXONE. [Suspect]
     Active Substance: CEFTRIAXONE
     Dosage: 1 GRAM
     Route: 030
     Dates: start: 20190618, end: 20190618

REACTIONS (6)
  - Chest discomfort [Unknown]
  - Lacrimation increased [Unknown]
  - Rhinorrhoea [Unknown]
  - Salivary hypersecretion [Unknown]
  - Hot flush [Unknown]
  - Rash [Unknown]

NARRATIVE: CASE EVENT DATE: 20190618
